FAERS Safety Report 9336766 (Version 3)
Quarter: 2013Q2

REPORT INFORMATION
  Report Type: Spontaneous
  Country: US (occurrence: US)
  Receive Date: 20130607
  Receipt Date: 20130628
  Transmission Date: 20140414
  Serious: Yes (Other)
  Sender: FDA-Public Use
  Company Number: US-BAYER-2013-067287

PATIENT
  Age: 47 Year
  Sex: Female

DRUGS (1)
  1. MIRENA [Suspect]
     Indication: CONTRACEPTION
     Dosage: 20 MCG/24HR, CONT
     Route: 015
     Dates: start: 20121127, end: 20130521

REACTIONS (7)
  - Pain [None]
  - Device malfunction [None]
  - Unevaluable event [None]
  - Amenorrhoea [None]
  - Abdominal pain [None]
  - Vaginal haemorrhage [None]
  - Device expulsion [Recovered/Resolved]
